FAERS Safety Report 12048613 (Version 1)
Quarter: 2016Q1

REPORT INFORMATION
  Report Type: Spontaneous
  Country: US (occurrence: US)
  Receive Date: 20160209
  Receipt Date: 20160209
  Transmission Date: 20160526
  Serious: No
  Sender: FDA-Public Use
  Company Number: US-BAYER-2016-025630

PATIENT
  Age: 87 Year
  Sex: Female
  Weight: 56.69 kg

DRUGS (3)
  1. BENADRYL [ACRIVASTINE] [Concomitant]
  2. ALLEGRA [Concomitant]
     Active Substance: FEXOFENADINE HYDROCHLORIDE
  3. MIRALAX [Suspect]
     Active Substance: POLYETHYLENE GLYCOL 3350
     Indication: CONSTIPATION
     Dosage: 1 DF, QD
     Route: 048
     Dates: start: 20160208

REACTIONS (1)
  - Product use issue [None]

NARRATIVE: CASE EVENT DATE: 20160208
